FAERS Safety Report 18569892 (Version 1)
Quarter: 2020Q4

REPORT INFORMATION
  Report Type: Spontaneous
  Country: TH (occurrence: TH)
  Receive Date: 20201202
  Receipt Date: 20201202
  Transmission Date: 20210114
  Serious: Yes (Other)
  Sender: FDA-Public Use
  Company Number: NVSC2020TH317614

PATIENT
  Age: 8 Year
  Sex: Female
  Weight: 49 kg

DRUGS (5)
  1. CYCLOSPORINE. [Suspect]
     Active Substance: CYCLOSPORINE
     Indication: IMMUNE THROMBOCYTOPENIA
     Dosage: UNK UNK, UNKNOWN
     Route: 065
     Dates: start: 2013
  2. IMMUNOGLOBULIN I.V [Concomitant]
     Active Substance: HUMAN IMMUNOGLOBULIN G
     Indication: IMMUNE THROMBOCYTOPENIA
     Dosage: UNK UNK, UNKNOWN (4 DOSES)
     Route: 065
     Dates: start: 2013
  3. PREDNISOLONE. [Concomitant]
     Active Substance: PREDNISOLONE
     Indication: IMMUNE THROMBOCYTOPENIA
     Dosage: 2 MG/KG, QD
     Route: 065
     Dates: start: 2013
  4. PREDNISOLONE. [Concomitant]
     Active Substance: PREDNISOLONE
     Dosage: UNK ((5) 3X2 PC
     Route: 065
  5. PENICILLIN V [Concomitant]
     Active Substance: PENICILLIN V
     Indication: PRODUCT USED FOR UNKNOWN INDICATION
     Dosage: UNK (250, 1X2 AC)
     Route: 065

REACTIONS (8)
  - Compression fracture [Unknown]
  - Obesity [Unknown]
  - Hirsutism [Unknown]
  - Ecchymosis [Unknown]
  - Platelet count decreased [Unknown]
  - Petechiae [Unknown]
  - Cushingoid [Unknown]
  - Osteopenia [Unknown]
